FAERS Safety Report 7398858-X (Version None)
Quarter: 2011Q2

REPORT INFORMATION
  Report Type: 
  Country: None (occurrence: None)
  Receive Date: 20110404
  Receipt Date: 20110404
  Transmission Date: 20111010
  Serious: Yes (Other)
  Sender: FDA-Public Use
  Company Number: None

PATIENT
  Age: 46 Year
  Sex: Female
  Weight: 62.5964 kg

DRUGS (1)
  1. PEG-3350/SODIUM CHLORIDE/SODIUM BICARBONATE/POTASSIUM CHLORIDE [Suspect]
     Indication: COLONOSCOPY
     Dosage: 8 OUNCES EVERY 10-20 MIN PO
     Route: 048
     Dates: start: 20110329, end: 20110329

REACTIONS (8)
  - VOMITING [None]
  - CHEST PAIN [None]
  - DEVICE FAILURE [None]
  - DIARRHOEA [None]
  - CHILLS [None]
  - TREMOR [None]
  - NAUSEA [None]
  - HEADACHE [None]
